FAERS Safety Report 23278273 (Version 1)
Quarter: 2023Q4

REPORT INFORMATION
  Report Type: Spontaneous
  Country: NL (occurrence: NL)
  Receive Date: 20231208
  Receipt Date: 20231208
  Transmission Date: 20240110
  Serious: Yes (Other)
  Sender: FDA-Public Use
  Company Number: None

PATIENT
  Age: 60 Year
  Sex: Male
  Weight: 73 kg

DRUGS (2)
  1. NORTRIPTYLINE [Suspect]
     Active Substance: NORTRIPTYLINE
     Indication: Depression
     Dosage: 1 DOSAGE FORM, QD 1X DAILY 1 - 2 PIECES, OFTEN IN COMBINATION WITH 25 MG TABLET
     Route: 065
     Dates: start: 20230601
  2. NORTRIPTYLINE [Suspect]
     Active Substance: NORTRIPTYLINE
     Indication: Depression
     Dosage: 1 DOSAGE FORM, QD 1X DAILY 1 - 2 PIECES, OFTEN IN COMBINATION WITH 25 MG TABLET
     Route: 065
     Dates: start: 20230601

REACTIONS (2)
  - Renal impairment [Not Recovered/Not Resolved]
  - Weight increased [Not Recovered/Not Resolved]
